FAERS Safety Report 24794946 (Version 1)
Quarter: 2024Q4

REPORT INFORMATION
  Report Type: Spontaneous
  Country: CZ (occurrence: CZ)
  Receive Date: 20241231
  Receipt Date: 20241231
  Transmission Date: 20250114
  Serious: Yes (Other)
  Sender: MYLAN
  Company Number: CZ-PFIZER INC-PV202400162006

PATIENT
  Age: 71 Year
  Sex: Male

DRUGS (2)
  1. LINEZOLID [Suspect]
     Active Substance: LINEZOLID
     Indication: Pneumonia streptococcal
     Dosage: 600 MILLIGRAM, BID, 600 MG, EVERY 12 HOURS
     Route: 065
     Dates: start: 20231229, end: 202401
  2. MEROPENEM [Suspect]
     Active Substance: MEROPENEM
     Indication: Pneumonia streptococcal
     Dosage: 2 GRAM, Q8H, 2 G, EVERY 8 HOURS
     Route: 042
     Dates: start: 20231227, end: 202401

REACTIONS (1)
  - Drug ineffective [Recovered/Resolved]
